FAERS Safety Report 13784329 (Version 1)
Quarter: 2017Q3

REPORT INFORMATION
  Report Type: Spontaneous
  Country: DK (occurrence: DK)
  Receive Date: 20170724
  Receipt Date: 20170724
  Transmission Date: 20171127
  Serious: Yes (Life-Threatening)
  Sender: FDA-Public Use
  Company Number: PHHY2017DK106237

PATIENT
  Age: 72 Year
  Sex: Female
  Weight: 46.6 kg

DRUGS (20)
  1. RISPERIDON KRKA [Concomitant]
     Active Substance: RISPERIDONE
     Indication: SEDATION
     Route: 048
     Dates: start: 20140308
  2. GABAPENTIN ^PCD^ [Concomitant]
     Active Substance: GABAPENTIN
     Indication: PAIN
     Dosage: DOSIS: 600 MG DAGLIGT, STYRKE: 300 MG
     Route: 048
     Dates: start: 20170615, end: 20170701
  3. ZOLOFT [Concomitant]
     Active Substance: SERTRALINE HYDROCHLORIDE
     Indication: DEPRESSION
     Route: 048
     Dates: start: 200001
  4. DOLOL [Concomitant]
     Active Substance: TRAMADOL
     Indication: PAIN
     Route: 048
     Dates: start: 20170302
  5. ELTROXIN [Concomitant]
     Active Substance: LEVOTHYROXINE
     Indication: HYPOTHYROIDISM
     Route: 048
     Dates: start: 20131125
  6. IBUMETIN [Concomitant]
     Active Substance: IBUPROFEN
     Indication: PAIN
     Route: 065
     Dates: start: 20160720
  7. LAXOBERAL [Concomitant]
     Active Substance: SODIUM PICOSULFATE
     Indication: CONSTIPATION
     Route: 048
     Dates: start: 20150622
  8. OXAPAX [Concomitant]
     Active Substance: OXAZEPAM
     Indication: RESTLESSNESS
     Route: 048
     Dates: start: 20140407
  9. PROLIA [Concomitant]
     Active Substance: DENOSUMAB
     Indication: OSTEOPOROSIS
     Route: 058
     Dates: start: 20160304
  10. PANODIL [Concomitant]
     Active Substance: ACETAMINOPHEN
     Indication: PAIN
     Route: 065
     Dates: start: 20140401
  11. VAGIFEM [Concomitant]
     Active Substance: ESTRADIOL
     Indication: OESTROGEN THERAPY
     Route: 067
     Dates: start: 20160106
  12. PANTOPRAZOL STADA [Concomitant]
     Indication: GASTRIC ULCER
     Route: 048
     Dates: start: 20130514
  13. AMITRIPTYLINE ^DAK^ [Concomitant]
     Active Substance: AMITRIPTYLINE
     Indication: DEPRESSION
     Route: 048
     Dates: start: 200001
  14. MAGNESIA ^DAK^ [Concomitant]
     Indication: CONSTIPATION
     Route: 048
     Dates: start: 20130516
  15. OXAPAX [Suspect]
     Active Substance: OXAZEPAM
     Indication: SUICIDE ATTEMPT
     Dosage: 450 MG, QD
     Route: 048
     Dates: start: 20170701, end: 20170701
  16. SERTRALINE [Suspect]
     Active Substance: SERTRALINE HYDROCHLORIDE
     Indication: SUICIDE ATTEMPT
     Dosage: 3000 MG, QD
     Route: 048
     Dates: start: 20170701, end: 20170701
  17. OMNIC [Concomitant]
     Active Substance: TAMSULOSIN HYDROCHLORIDE
     Indication: DYSURIA
     Route: 048
     Dates: start: 20170323
  18. AMITRIPTYLINE ^DAK^ [Suspect]
     Active Substance: AMITRIPTYLINE
     Indication: SUICIDE ATTEMPT
     Dosage: 1500 MG, QD
     Route: 048
     Dates: start: 20170701, end: 20170701
  19. SPIROCORT [Concomitant]
     Active Substance: BUDESONIDE
     Indication: ASTHMA
     Route: 055
     Dates: start: 20130515
  20. CLOPIDOGREL [Concomitant]
     Active Substance: CLOPIDOGREL BISULFATE
     Indication: THROMBOSIS PROPHYLAXIS
     Route: 048
     Dates: start: 20140308

REACTIONS (3)
  - Respiration abnormal [Recovered/Resolved]
  - Intentional overdose [Recovered/Resolved]
  - Suicide attempt [Recovered/Resolved]

NARRATIVE: CASE EVENT DATE: 20170701
